FAERS Safety Report 21067870 (Version 1)
Quarter: 2022Q3

REPORT INFORMATION
  Report Type: Spontaneous
  Country: PL (occurrence: PL)
  Receive Date: 20220712
  Receipt Date: 20220712
  Transmission Date: 20221027
  Serious: Yes (Death, Other)
  Sender: FDA-Public Use
  Company Number: PL-SUN PHARMACEUTICAL INDUSTRIES LTD-2022RR-344062

PATIENT
  Age: 67 Year
  Sex: Male

DRUGS (7)
  1. GEMCITABINE [Suspect]
     Active Substance: GEMCITABINE
     Indication: Transitional cell carcinoma
     Dosage: 1000 MILLIGRAM/SQ. METER, ON THE 1ST, 8TH, AND 15TH REPEATING CYCLE EVERY 4 WEEKS
     Route: 042
     Dates: start: 202003
  2. GEMCITABINE [Suspect]
     Active Substance: GEMCITABINE
     Indication: Prostate cancer
  3. GABAPENTIN [Suspect]
     Active Substance: GABAPENTIN
     Indication: Polyneuropathy
     Dosage: UNK
     Route: 065
  4. CISPLATIN [Suspect]
     Active Substance: CISPLATIN
     Indication: Transitional cell carcinoma
     Dosage: 75 MILLIGRAM/SQ. METER, ON THE FIRST DAY
     Route: 042
     Dates: start: 202003
  5. CISPLATIN [Suspect]
     Active Substance: CISPLATIN
     Indication: Prostate cancer
  6. PACLITAXEL [Suspect]
     Active Substance: PACLITAXEL
     Indication: Transitional cell carcinoma
     Dosage: 80 MILLIGRAM/SQ. METER, WEEKLY
     Route: 065
     Dates: start: 202010
  7. PACLITAXEL [Suspect]
     Active Substance: PACLITAXEL
     Indication: Prostate cancer

REACTIONS (4)
  - Disease progression [Fatal]
  - Metastases to central nervous system [Fatal]
  - Polyneuropathy [Unknown]
  - Dizziness [Unknown]

NARRATIVE: CASE EVENT DATE: 20201101
